FAERS Safety Report 12764111 (Version 2)
Quarter: 2016Q4

REPORT INFORMATION
  Report Type: Not Available
  Country: None (occurrence: US)
  Receive Date: 20160920
  Receipt Date: 20161024
  Transmission Date: 20170207
  Serious: No
  Sender: FDA-Public Use
  Company Number: US-AKORN-39186

PATIENT
  Sex: Female

DRUGS (1)
  1. TROPICAMIDE 1% OPHTHALMIC SOLUTION, USP [Suspect]
     Active Substance: TROPICAMIDE

REACTIONS (6)
  - Vision blurred [None]
  - Intraocular pressure increased [None]
  - Feeling abnormal [Unknown]
  - Foreign body sensation in eyes [Unknown]
  - Depression [Unknown]
  - Lacrimal disorder [Unknown]

NARRATIVE: CASE EVENT DATE: 20160912
